FAERS Safety Report 8891034 (Version 1)
Quarter: 2012Q4

REPORT INFORMATION
  Report Type: Report from Study
  Country: US (occurrence: US)
  Receive Date: 20121107
  Receipt Date: 20121107
  Transmission Date: 20130627
  Serious: Yes (Death, Life-Threatening)
  Sender: FDA-Public Use
  Company Number: US-BRISTOL-MYERS SQUIBB COMPANY-17092156

PATIENT
  Age: 57 Year
  Sex: Female

DRUGS (26)
  1. ORENCIA [Suspect]
     Indication: RHEUMATOID ARTHRITIS
     Route: 058
     Dates: start: 20080814, end: 20121012
  2. METHOTREXATE [Suspect]
     Indication: RHEUMATOID ARTHRITIS
  3. PREDNISONE [Suspect]
     Indication: RHEUMATOID ARTHRITIS
  4. CLARITIN [Concomitant]
     Indication: PROPHYLAXIS
     Route: 048
     Dates: start: 20110315
  5. CYMBALTA [Concomitant]
     Indication: LUNG DISORDER
     Route: 048
     Dates: start: 20120704
  6. SYMBICORT [Concomitant]
     Indication: LUNG DISORDER
     Dosage: 1DF = 160/45 mg
     Route: 045
  7. ZOLPIDEM [Concomitant]
     Indication: INSOMNIA
     Route: 048
     Dates: start: 20030315
  8. POTASSIUM CHLORIDE [Concomitant]
     Indication: NUTRITIONAL SUPPORT
     Route: 048
     Dates: start: 20080612
  9. BUDEPRION [Concomitant]
     Indication: DEPRESSION
     Route: 048
     Dates: start: 20060801
  10. ALEVE [Concomitant]
     Indication: HYPERTENSION
     Route: 048
     Dates: start: 2008
  11. DYAZIDE [Concomitant]
     Indication: HYPERTENSION
     Dates: start: 20090204
  12. PREDNISONE [Concomitant]
     Indication: RHEUMATOID ARTHRITIS
     Route: 048
     Dates: start: 20080116
  13. BACTRIM [Concomitant]
  14. COMBIVENT [Concomitant]
  15. HUMALOG [Concomitant]
  16. PROPOFOL [Concomitant]
  17. AZITHROMYCIN [Concomitant]
  18. ALBUTEROL [Concomitant]
     Route: 045
  19. CEFTRIAXONE [Concomitant]
     Route: 042
  20. CHLORHEXIDINE [Concomitant]
  21. DEXTROSE [Concomitant]
     Indication: HYPOGLYCAEMIA
     Dosage: Dextrose 50 injection
  22. ENOXAPARIN [Concomitant]
     Route: 058
  23. FLUCONAZOLE [Concomitant]
     Route: 042
  24. MIDAZOLAM [Concomitant]
     Route: 042
  25. NOREPINEPHRINE [Concomitant]
  26. PIPERACILLIN [Concomitant]

REACTIONS (3)
  - Pneumonia staphylococcal [Fatal]
  - Acute respiratory failure [Fatal]
  - Sepsis [Fatal]
